FAERS Safety Report 4804968-0 (Version None)
Quarter: 2005Q4

REPORT INFORMATION
  Report Type: 
  Country: None (occurrence: None)
  Receive Date: 20051017
  Receipt Date: 20051003
  Transmission Date: 20060501
  Serious: Yes (Hospitalization)
  Sender: FDA-Public Use
  Company Number: SGB1-2005-00438

PATIENT
  Age: 60 Year
  Sex: Female

DRUGS (12)
  1. LANTHANUM CARBONATE (LANTHANUM CARBONATE) TABLET CHEWABLE [Suspect]
     Indication: HYPERPHOSPHATAEMIA
     Dosage: 750 MG DAILY, ORAL
     Route: 048
     Dates: start: 20050214, end: 20051001
  2. WARFARIN SODIUM [Concomitant]
  3. SELBEX (TEPRENONE) [Concomitant]
  4. METHYCOBAL (MECOBALAMIN) [Concomitant]
  5. URSODIOL [Concomitant]
  6. ALOSENN (TARAXACUM OFFICINALE, ACHILLEA MILLEFOLIUM, RUBIA TINCTORUM R [Concomitant]
  7. AMLODIPINE BESYLATE [Concomitant]
  8. BLOPRESS (CANDESARTAN CILEXETIL) [Concomitant]
  9. IMIDAPRIL HYDROCHLORIDE (IMIDAPRIL HYDROCHLORIDE) [Concomitant]
  10. ADALAT [Concomitant]
  11. HEPARIN [Concomitant]
  12. PARNAPARIN SODIUM (HEPARIN-FRACTION, SODIUM SALT) [Concomitant]

REACTIONS (10)
  - ABDOMINAL PAIN UPPER [None]
  - ANOREXIA [None]
  - ASTHENIA [None]
  - CEREBRAL HAEMORRHAGE [None]
  - HAEMATOCHEZIA [None]
  - HAEMORRHAGE [None]
  - MOUTH HAEMORRHAGE [None]
  - MOVEMENT DISORDER [None]
  - NAUSEA [None]
  - VOMITING [None]
